FAERS Safety Report 9555607 (Version 1)
Quarter: 2013Q3

REPORT INFORMATION
  Report Type: Spontaneous
  Country: US (occurrence: None)
  Receive Date: 20130815
  Receipt Date: 20130815
  Transmission Date: 20140515
  Serious: Yes (Hospitalization)
  Sender: FDA-Public Use
  Company Number: ADR-2013-00521

PATIENT
  Age: 48 Year
  Sex: Male

DRUGS (3)
  1. BACLOFEN INTRATHECAL [Suspect]
  2. FENTANYL [Concomitant]
  3. BUPIVACAINE [Concomitant]

REACTIONS (2)
  - Pain in extremity [None]
  - Spinal pain [None]
